FAERS Safety Report 9305801 (Version 2)
Quarter: 2013Q2

REPORT INFORMATION
  Report Type: Spontaneous
  Country: GB (occurrence: None)
  Receive Date: 20130513
  Receipt Date: 20130625
  Transmission Date: 20140414
  Serious: Yes (Other)
  Sender: FDA-Public Use
  Company Number: 2013035935

PATIENT
  Sex: Female

DRUGS (1)
  1. PRIVIGEN (IMMUNE GLOBULIN INTRAVENOUS (HUMAN) 10% LIQUID) [Suspect]

REACTIONS (1)
  - Urinary tract infection [None]
